FAERS Safety Report 8287544-X (Version None)
Quarter: 2012Q2

REPORT INFORMATION
  Report Type: 
  Country: None (occurrence: None)
  Receive Date: 20120416
  Receipt Date: 20120411
  Transmission Date: 20120825
  Serious: Yes (Other)
  Sender: FDA-Public Use
  Company Number: US-BRACCO-007837

PATIENT
  Sex: Female

DRUGS (1)
  1. MULTIHANCE [Suspect]
     Indication: NUCLEAR MAGNETIC RESONANCE IMAGING BRAIN
     Route: 042
     Dates: start: 20120410, end: 20120410

REACTIONS (5)
  - PAIN [None]
  - ANXIETY [None]
  - VIITH NERVE PARALYSIS [None]
  - HEADACHE [None]
  - CHEST DISCOMFORT [None]
